FAERS Safety Report 9964002 (Version 1)
Quarter: 2014Q1

REPORT INFORMATION
  Report Type: Spontaneous
  Country: US (occurrence: US)
  Receive Date: 20140305
  Receipt Date: 20140305
  Transmission Date: 20141002
  Serious: No
  Sender: FDA-Public Use
  Company Number: US-BAYER-2014-029768

PATIENT
  Sex: Female

DRUGS (1)
  1. BETASERON [Suspect]
     Indication: MULTIPLE SCLEROSIS
     Dosage: 0.3 MG, QOD
     Route: 058
     Dates: start: 1999, end: 2014

REACTIONS (6)
  - Musculoskeletal stiffness [Unknown]
  - Influenza like illness [Unknown]
  - Headache [Unknown]
  - Injection site mass [Unknown]
  - Injection site bruising [Unknown]
  - Injection site discolouration [Unknown]
